FAERS Safety Report 6130621-X (Version None)
Quarter: 2009Q1

REPORT INFORMATION
  Report Type: 
  Country: None (occurrence: None)
  Receive Date: 20090325
  Receipt Date: 20090316
  Transmission Date: 20090719
  Serious: Yes (Hospitalization)
  Sender: FDA-Public Use
  Company Number: GB-TEVA-184128ISR

PATIENT
  Sex: Male

DRUGS (6)
  1. CIPROFLOXACIN HYDROCHLORIDE FILM COATED TABLETS, 250 MG [Suspect]
     Indication: INFECTION
     Route: 048
     Dates: start: 20090113, end: 20090114
  2. AMIODARONE HCL [Concomitant]
     Indication: ATRIAL FIBRILLATION
     Route: 048
  3. BISOPROLOL FUMARATE [Concomitant]
     Indication: ATRIAL FIBRILLATION
     Route: 048
  4. ACETYLSALICYLIC ACID [Concomitant]
     Indication: ATRIAL FIBRILLATION
     Route: 048
  5. TRIMETHOPRIM [Concomitant]
     Route: 048
     Dates: start: 20081222
  6. ERYTHROMYCIN [Concomitant]
     Route: 048
     Dates: start: 20081226, end: 20090113

REACTIONS (13)
  - ARTERIAL THROMBOSIS LIMB [None]
  - ATRIAL FIBRILLATION [None]
  - BACK PAIN [None]
  - CHEST PAIN [None]
  - DEAFNESS UNILATERAL [None]
  - DIZZINESS [None]
  - HEADACHE [None]
  - HEART RATE INCREASED [None]
  - LIMB CRUSHING INJURY [None]
  - NECK PAIN [None]
  - PAIN IN EXTREMITY [None]
  - PALPITATIONS [None]
  - TINNITUS [None]
